FAERS Safety Report 10021448 (Version 1)
Quarter: 2014Q1

REPORT INFORMATION
  Report Type: Spontaneous
  Country: US (occurrence: None)
  Receive Date: 20140318
  Receipt Date: 20140318
  Transmission Date: 20141002
  Serious: Yes (Other)
  Sender: FDA-Public Use
  Company Number: None

PATIENT
  Age: 33 Year
  Sex: Male
  Weight: 97.52 kg

DRUGS (1)
  1. MIRVASO [Suspect]
     Dosage: ONCE DAILY ?APPLIED TO A SURFACE, USUALLY THE SKIN
     Route: 061

REACTIONS (3)
  - Flushing [None]
  - Rosacea [None]
  - Condition aggravated [None]
